FAERS Safety Report 21821490 (Version 1)
Quarter: 2023Q1

REPORT INFORMATION
  Report Type: Spontaneous
  Country: GR (occurrence: GR)
  Receive Date: 20230105
  Receipt Date: 20230105
  Transmission Date: 20230417
  Serious: No
  Sender: FDA-Public Use
  Company Number: GR-PADAGIS-2022PAD01281

PATIENT

DRUGS (1)
  1. BETAMETHASONE DIPROPIONATE USP, 0.05% [Suspect]
     Active Substance: BETAMETHASONE DIPROPIONATE
     Indication: Rash macular
     Dosage: 3 MONTH COURSE
     Route: 061

REACTIONS (1)
  - Drug ineffective [Unknown]
